FAERS Safety Report 4357447-1 (Version None)
Quarter: 2004Q2

REPORT INFORMATION
  Report Type: 
  Country: None (occurrence: None)
  Receive Date: 20040513
  Receipt Date: 20040503
  Transmission Date: 20050107
  Serious: Yes (Hospitalization)
  Sender: FDA-Public Use
  Company Number: US-BRISTOL-MYERS SQUIBB COMPANY-12576708

PATIENT
  Age: 80 Year
  Sex: Female

DRUGS (15)
  1. PACLITAXEL [Suspect]
     Indication: OVARIAN CANCER
     Dosage: 175 MG/M^2; THERAPY DATES: 17-MAR-2004 TO 08-APR-2004
     Route: 042
     Dates: start: 20040408, end: 20040408
  2. CARBOPLATIN [Suspect]
     Indication: OVARIAN CANCER
     Dosage: AUC 6; THERAPY DATES: 17-MAR-2004 TO 08-APR-2004
     Route: 042
     Dates: start: 20040408, end: 20040408
  3. CALCIUM [Concomitant]
  4. PREVACID [Concomitant]
  5. NITROGLYCERIN [Concomitant]
     Route: 060
  6. DIGOXIN [Concomitant]
  7. ASPIRIN [Concomitant]
  8. COREG [Concomitant]
  9. CAPOTEN [Concomitant]
  10. GLYCERYL TRINITRATE [Concomitant]
  11. ZOCOR [Concomitant]
  12. LASIX [Concomitant]
  13. ATIVAN [Concomitant]
  14. COMPAZINE [Concomitant]
  15. DECADRON [Concomitant]

REACTIONS (1)
  - ANGINA UNSTABLE [None]
